FAERS Safety Report 5478856-3 (Version None)
Quarter: 2007Q4

REPORT INFORMATION
  Report Type: 
  Country: None (occurrence: None)
  Receive Date: 20071002
  Receipt Date: 20070918
  Transmission Date: 20080405
  Serious: Yes (Hospitalization, Disabling)
  Sender: FDA-Public Use
  Company Number: WAES 0709GBR00108

PATIENT
  Age: 83 Year
  Sex: Male

DRUGS (10)
  1. COZAAR [Suspect]
     Indication: CARDIAC FAILURE CONGESTIVE
     Dosage: PO
     Route: 048
     Dates: start: 20031209
  2. ACETAMINOPHEN [Concomitant]
  3. ACETAMINOPHEN (+) DIHYDROCODEINE BITARTR [Concomitant]
  4. AMLODIPINE BESYLATE [Concomitant]
  5. BISOPROLOL FUMARATE [Concomitant]
  6. CLOPIDOGREL BISULFATE [Concomitant]
  7. FUROSEMIDE [Concomitant]
  8. NITROGLYCERIN [Concomitant]
  9. QUININE SULFATE [Concomitant]
  10. TEMAZEPAM [Concomitant]

REACTIONS (1)
  - NON-SMALL CELL LUNG CANCER [None]
